FAERS Safety Report 6402573-6 (Version None)
Quarter: 2009Q4

REPORT INFORMATION
  Report Type: 
  Country: None (occurrence: None)
  Receive Date: 20091015
  Receipt Date: 20090914
  Transmission Date: 20100525
  Serious: Yes (Disabling)
  Sender: FDA-Public Use
  Company Number: PH-MERCK-0910PHL00001

PATIENT
  Sex: Male

DRUGS (2)
  1. JANUMET [Suspect]
     Indication: DIABETES MELLITUS
     Route: 048
     Dates: start: 20090101, end: 20090101
  2. JANUVIA [Concomitant]
     Indication: DIABETES MELLITUS
     Route: 048
     Dates: start: 20070101, end: 20090101

REACTIONS (1)
  - DIZZINESS [None]
